FAERS Safety Report 7018540-8 (Version None)
Quarter: 2010Q3

REPORT INFORMATION
  Report Type: 
  Country: None (occurrence: None)
  Receive Date: 20100924
  Receipt Date: 20100910
  Transmission Date: 20110219
  Serious: Yes (Hospitalization)
  Sender: FDA-Public Use
  Company Number: 1000016246

PATIENT
  Age: 67 Year
  Sex: Female

DRUGS (6)
  1. ESCITALOPRAM [Suspect]
     Indication: DEPRESSION
     Dosage: (1 DOSAGE FORMS)
     Dates: start: 20091113
  2. CALCIPARINE [Suspect]
     Dosage: 22500 IU (7500 IU, 3 IN 1 D), SUBCUTANEOUS
     Route: 058
     Dates: start: 20091118, end: 20091120
  3. COLCHICINE (COLCHICINE) [Suspect]
     Indication: HYPERURICAEMIA
     Dosage: 1 DOSAGE FORMS 91 DOSAGE FORMS, 1 IN 1 D), ORAL
     Route: 048
     Dates: start: 20091118, end: 20091122
  4. FORLAX (MACROGOL) (10 GRAM) [Suspect]
     Indication: CONSTIPATION
     Dosage: (3 DOSAGE FORMS)
     Dates: start: 20091118
  5. NORMACOL [Suspect]
     Dates: start: 20091118
  6. KETOPROFEN [Suspect]
     Dosage: (2 DOSAGE FORMS), ORAL
     Route: 048
     Dates: start: 20091118, end: 20091124

REACTIONS (2)
  - CHOLESTASIS [None]
  - CYTOLYTIC HEPATITIS [None]
